FAERS Safety Report 9144349 (Version 2)
Quarter: 2013Q1

REPORT INFORMATION
  Report Type: Spontaneous
  Country: US (occurrence: US)
  Receive Date: 20130306
  Receipt Date: 20130321
  Transmission Date: 20140127
  Serious: Yes (Hospitalization, Other)
  Sender: FDA-Public Use
  Company Number: GB-PFIZER INC-2013076252

PATIENT
  Age: 3 Year
  Sex: Male

DRUGS (1)
  1. PHENYTOIN [Suspect]
     Indication: EPILEPSY
     Dosage: 60 ML, 1:5 G, ONCE
     Route: 048
     Dates: start: 19560916

REACTIONS (6)
  - Toxicity to various agents [Recovered/Resolved]
  - Depressed level of consciousness [Recovered/Resolved]
  - Lethargy [Recovered/Resolved]
  - Unresponsive to stimuli [Recovered/Resolved]
  - Delirium [Recovered/Resolved]
  - Mydriasis [Recovered/Resolved]
